FAERS Safety Report 6386070-2 (Version None)
Quarter: 2009Q4

REPORT INFORMATION
  Report Type: 
  Country: None (occurrence: None)
  Receive Date: 20091002
  Receipt Date: 20081112
  Transmission Date: 20100525
  Serious: No
  Sender: FDA-Public Use
  Company Number: US-ASTRAZENECA-2008UW25312

PATIENT
  Age: 55 Year
  Sex: Female

DRUGS (4)
  1. ARIMIDEX [Suspect]
     Indication: BREAST CANCER FEMALE
     Route: 048
     Dates: start: 20081001
  2. AMBIEN [Concomitant]
  3. MULTI-VITAMIN [Concomitant]
  4. REPLENS [Concomitant]

REACTIONS (4)
  - DRY EYE [None]
  - LIBIDO DECREASED [None]
  - MUCOSAL DRYNESS [None]
  - VULVOVAGINAL DRYNESS [None]
